FAERS Safety Report 24427056 (Version 4)
Quarter: 2025Q3

REPORT INFORMATION
  Report Type: Spontaneous
  Country: JP (occurrence: JP)
  Receive Date: 20241011
  Receipt Date: 20250711
  Transmission Date: 20251021
  Serious: Yes (Other)
  Sender: ASTELLAS
  Company Number: JP-ASTELLAS-2024-AER-010892

PATIENT
  Age: 85 Year
  Sex: Female
  Weight: 53 kg

DRUGS (9)
  1. PADCEV [Suspect]
     Active Substance: ENFORTUMAB VEDOTIN-EJFV
     Indication: Transitional cell cancer of the renal pelvis and ureter
     Dosage: 53 MG/DAY, ONCE A WEEK, 3 DOSES THEN 1 REST
     Route: 065
     Dates: start: 20240624, end: 20241007
  2. PADCEV [Suspect]
     Active Substance: ENFORTUMAB VEDOTIN-EJFV
     Route: 065
     Dates: start: 20241028, end: 20250303
  3. NIFEDIPINE [Concomitant]
     Active Substance: NIFEDIPINE
     Indication: Hypertension
     Dosage: IN THE MORNING
     Route: 048
  4. REXULTI [Concomitant]
     Active Substance: BREXPIPRAZOLE
     Indication: Schizophrenia
     Route: 048
  5. Glactiv tablet [Concomitant]
     Indication: Diabetes mellitus
     Route: 048
  6. Cilostazol OD tablet [Concomitant]
     Indication: Product used for unknown indication
     Route: 048
  7. PIOGLITAZONE [Concomitant]
     Active Substance: PIOGLITAZONE
     Indication: Diabetes mellitus
     Route: 048
  8. PREDNISOLONE [Concomitant]
     Active Substance: PREDNISOLONE
     Indication: Decreased appetite
     Route: 048
     Dates: start: 20240702
  9. Isotonic sodium chloride solution 50mL [Concomitant]
     Indication: Product used for unknown indication
     Route: 065

REACTIONS (2)
  - Atrial fibrillation [Not Recovered/Not Resolved]
  - Decreased appetite [Recovered/Resolved]

NARRATIVE: CASE EVENT DATE: 20240701
